FAERS Safety Report 6629417-1 (Version None)
Quarter: 2010Q1

REPORT INFORMATION
  Report Type: 
  Country: None (occurrence: None)
  Receive Date: 20100311
  Receipt Date: 20090716
  Transmission Date: 20100710
  Serious: No
  Sender: FDA-Public Use
  Company Number: US-BIOGENIDEC-2009BI021922

PATIENT
  Age: 38 Year
  Sex: Male

DRUGS (5)
  1. AVONEX [Suspect]
     Indication: MULTIPLE SCLEROSIS
     Route: 030
     Dates: start: 20070301, end: 20070301
  2. AVONEX [Suspect]
     Route: 030
     Dates: start: 20070301, end: 20070301
  3. AVONEX [Suspect]
     Route: 030
     Dates: start: 20070301
  4. TYLENOL-500 [Concomitant]
     Indication: PREMEDICATION
     Route: 048
  5. ALEVE (CAPLET) [Concomitant]
     Indication: PREMEDICATION
     Route: 048

REACTIONS (4)
  - ASTHENIA [None]
  - CHILLS [None]
  - INFLUENZA LIKE ILLNESS [None]
  - TREMOR [None]
